FAERS Safety Report 9246283 (Version 1)
Quarter: 2013Q2

REPORT INFORMATION
  Report Type: Spontaneous
  Country: None (occurrence: ZA)
  Receive Date: 20130422
  Receipt Date: 20130422
  Transmission Date: 20140414
  Serious: Yes (Other)
  Sender: FDA-Public Use
  Company Number: ZA-BANPHARM-20131197

PATIENT
  Sex: 0

DRUGS (4)
  1. VALPROIC ACID UNKNOWN PRODUCT [Suspect]
     Indication: EPILEPSY
     Dosage: 30 MG/KG, QD,
  2. STAVUDINE [Concomitant]
  3. LAMIVUDINE [Concomitant]
  4. EFAVIRENZ [Concomitant]

REACTIONS (1)
  - Convulsion [Unknown]
